FAERS Safety Report 9252550 (Version 1)
Quarter: 2013Q2

REPORT INFORMATION
  Report Type: Spontaneous
  Country: US (occurrence: US)
  Receive Date: 20130424
  Receipt Date: 20130424
  Transmission Date: 20140414
  Serious: Yes (Death, Other)
  Sender: FDA-Public Use
  Company Number: US-JNJFOC-20130413287

PATIENT
  Age: 70 Year
  Sex: Male

DRUGS (1)
  1. XARELTO [Suspect]
     Indication: PULMONARY EMBOLISM
     Route: 048

REACTIONS (6)
  - Thrombosis [Fatal]
  - Dyspnoea [Unknown]
  - Chest pain [Unknown]
  - Deep vein thrombosis [Unknown]
  - Hypotension [Unknown]
  - Electrocardiogram ST-T segment abnormal [Unknown]
